FAERS Safety Report 18778941 (Version 1)
Quarter: 2021Q1

REPORT INFORMATION
  Report Type: Report from Study
  Country: None (occurrence: US)
  Receive Date: 20210124
  Receipt Date: 20210124
  Transmission Date: 20210419
  Serious: Yes (Hospitalization)
  Sender: FDA-Public Use
  Company Number: US-ABBVIE-21K-163-3740894-00

PATIENT
  Age: 40 Year
  Sex: Female
  Weight: 52.6 kg

DRUGS (2)
  1. HUMIRA [Suspect]
     Active Substance: ADALIMUMAB
     Route: 058
     Dates: start: 201910
  2. HUMIRA [Suspect]
     Active Substance: ADALIMUMAB
     Indication: CROHN^S DISEASE
     Route: 058
     Dates: end: 2019

REACTIONS (17)
  - Ileal ulcer [Unknown]
  - Crohn^s disease [Unknown]
  - Anorectal disorder [Unknown]
  - Small intestinal stenosis [Unknown]
  - Anal fistula [Recovered/Resolved]
  - Bloody discharge [Unknown]
  - Drug ineffective [Unknown]
  - Intestinal mass [Unknown]
  - Vomiting [Unknown]
  - Fibrosis [Unknown]
  - Abdominal pain lower [Unknown]
  - Haematochezia [Unknown]
  - Weight decreased [Unknown]
  - Ileal stenosis [Unknown]
  - Hypophagia [Unknown]
  - Small intestinal obstruction [Unknown]
  - Flatulence [Unknown]

NARRATIVE: CASE EVENT DATE: 2019
